FAERS Safety Report 19474300 (Version 1)
Quarter: 2021Q2

REPORT INFORMATION
  Report Type: Spontaneous
  Country: US (occurrence: US)
  Receive Date: 20210629
  Receipt Date: 20210629
  Transmission Date: 20210717
  Serious: Yes (Other)
  Sender: FDA-Public Use
  Company Number: US-PFIZER INC-2021720518

PATIENT
  Age: 68 Year
  Sex: Male
  Weight: 73.7 kg

DRUGS (22)
  1. MYCOBUTIN [Suspect]
     Active Substance: RIFABUTIN
     Indication: ANTIBIOTIC THERAPY
     Dosage: 500MG CAPSULE MORNING AND NIGHT
  2. DUONEB [Concomitant]
     Active Substance: ALBUTEROL SULFATE\IPRATROPIUM BROMIDE
     Dosage: 0.5MG?2.5MG/3ML TWICE A DAY VIA NEBULATION
  3. ETHAMBUTOL [Concomitant]
     Active Substance: ETHAMBUTOL HYDROCHLORIDE
     Indication: ANTASTHMATIC DRUG LEVEL
     Dosage: 1200MG EVERY THREE DAYS BY MOUTH
  4. NOVOLOG [Concomitant]
     Active Substance: INSULIN ASPART
     Indication: STEROID DIABETES
     Dosage: 4ML ON SLIDING SCALE, INJECTION IN SUB Q PEN
  5. GABAPENTIN. [Concomitant]
     Active Substance: GABAPENTIN
     Dosage: 300MG FOUR TIME A DAY
  6. MYCOPHENOLATE MOFETIL. [Concomitant]
     Active Substance: MYCOPHENOLATE MOFETIL
     Indication: PROPHYLAXIS AGAINST TRANSPLANT REJECTION
     Dosage: 500MG TWICE A DAY BY MOUTH
  7. BACTRIM DS [Concomitant]
     Active Substance: SULFAMETHOXAZOLE\TRIMETHOPRIM
     Dosage: 1 TABLET THREE TIME A DAY; STRENGTH OF TABLET UNKNOWN TO CALLER BY MOUTH
  8. VALACICLOVIR [Concomitant]
     Active Substance: VALACYCLOVIR HYDROCHLORIDE
     Indication: VIRAL INFECTION
     Dosage: 500MG DAILY BY MOUTH
  9. LEVOTHYROXINE SODIUM. [Concomitant]
     Active Substance: LEVOTHYROXINE SODIUM
     Indication: THYROID THERAPY
     Dosage: 100MCG ONE TABLET A DAY BY MOUTH
  10. HYPERSAL [Concomitant]
     Active Substance: SODIUM CHLORIDE
     Dosage: INHALATION; 7% 4ML 2 TIMES A DAY
  11. PROTONIX [OMEPRAZOLE] [Concomitant]
     Active Substance: OMEPRAZOLE
     Dosage: 40MG ONCE A DAY BY MOUTH
  12. LASIX [Concomitant]
     Active Substance: FUROSEMIDE
     Indication: PULMONARY OEDEMA
     Dosage: 40MG ONCE DAILY AND PRN IF NEEDS ADDITIONAL
  13. POTASSIUM CHLORIDE. [Concomitant]
     Active Substance: POTASSIUM CHLORIDE
     Indication: ELECTROLYTE SUBSTITUTION THERAPY
     Dosage: 10MG DAILY BY MOUTH
  14. VITAMIN D [COLECALCIFEROL] [Concomitant]
     Active Substance: CHOLECALCIFEROL
     Dosage: 1000 UNITS TWICE A DAY
  15. AMIODARONE HYDROCHLORIDE. [Concomitant]
     Active Substance: AMIODARONE HYDROCHLORIDE
     Indication: ARRHYTHMIA
     Dosage: 100MG TWO TABLETS AT BEDTIME BY MOUTH
  16. PRAVASTATIN. [Concomitant]
     Active Substance: PRAVASTATIN
     Indication: BLOOD CHOLESTEROL
     Dosage: 40MG ONE TABLET A DAY BY MOUTH
  17. PREDNISONE. [Concomitant]
     Active Substance: PREDNISONE
     Indication: PROPHYLAXIS AGAINST TRANSPLANT REJECTION
     Dosage: 10MG DAILY BY MOUTH
  18. ALENDRONATE [Concomitant]
     Active Substance: ALENDRONATE SODIUM
     Indication: OSTEOPOROSIS
     Dosage: 70MG/75ML ONCE EVERY OTHER WEEK, ORALLY
  19. APIXABAN [Concomitant]
     Active Substance: APIXABAN
     Indication: CEREBROVASCULAR ACCIDENT
     Dosage: 2.5MG TABLET TWICE A DAY BY MOUTH
  20. TRESIBA [Concomitant]
     Active Substance: INSULIN DEGLUDEC
     Dosage: UNKNOWN DOSE STRENGTH; 4 TIMES A DAY
  21. LANTUS [Concomitant]
     Active Substance: INSULIN GLARGINE
     Indication: INSULIN THERAPY
     Dosage: TAKES AS NEEDED, PRESCRIBED AS 20 UNITS IN MORNING AND 35 UNITS AT NIGHT BASED ON BLOOD SUGAR.
  22. TACROLIMUS. [Concomitant]
     Active Substance: TACROLIMUS
     Indication: PROPHYLAXIS AGAINST TRANSPLANT REJECTION
     Dosage: 4MG IN THE MORNING AND 3.5MG AT NIGH CAPSULE

REACTIONS (6)
  - Immobilisation syndrome [Unknown]
  - Cough [Unknown]
  - Tremor [Unknown]
  - Somnolence [Unknown]
  - Fatigue [Unknown]
  - Productive cough [Unknown]

NARRATIVE: CASE EVENT DATE: 20210615
